FAERS Safety Report 14623495 (Version 4)
Quarter: 2022Q1

REPORT INFORMATION
  Report Type: Spontaneous
  Country: ES (occurrence: ES)
  Receive Date: 20180312
  Receipt Date: 20220310
  Transmission Date: 20220423
  Serious: Yes (Disabling, Other)
  Sender: FDA-Public Use
  Company Number: ES-AUROBINDO-AUR-APL-2018-013106

PATIENT
  Age: 49 Year
  Sex: Male
  Weight: 70 kg

DRUGS (10)
  1. RIBAVIRIN [Suspect]
     Active Substance: RIBAVIRIN
     Indication: Chronic hepatitis C
     Dosage: UNK
     Route: 065
     Dates: start: 20150501
  2. RIBAVIRIN [Suspect]
     Active Substance: RIBAVIRIN
     Indication: HIV infection
  3. SIMEPREVIR [Suspect]
     Active Substance: SIMEPREVIR
     Indication: Chronic hepatitis C
     Dosage: UNK
     Route: 065
     Dates: start: 20150501
  4. SIMEPREVIR [Suspect]
     Active Substance: SIMEPREVIR
     Indication: HIV infection
  5. SOFOSBUVIR [Suspect]
     Active Substance: SOFOSBUVIR
     Indication: Chronic hepatitis C
     Dosage: UNK
     Route: 065
     Dates: start: 20150501
  6. LEDIPASVIR\SOFOSBUVIR [Concomitant]
     Active Substance: LEDIPASVIR\SOFOSBUVIR
     Indication: Chronic hepatitis C
     Dosage: UNK
     Route: 065
  7. LAMIVUDINE [Concomitant]
     Active Substance: LAMIVUDINE
     Indication: HIV infection
     Dosage: DOSAGE FORM: UNSPECIFIED ()
     Route: 065
  8. ETRAVIRINE [Concomitant]
     Active Substance: ETRAVIRINE
     Indication: HIV infection
     Dosage: UNK
     Route: 065
  9. RALTEGRAVIR [Concomitant]
     Active Substance: RALTEGRAVIR
     Indication: HIV infection
     Dosage: DOSAGE FORM: UNSPECIFIED ()
     Route: 065
  10. ABACAVIR [Concomitant]
     Active Substance: ABACAVIR
     Indication: HIV infection
     Dosage: DOSAGE FORM: UNSPECIFIED ()
     Route: 065

REACTIONS (2)
  - Choroiditis [Recovering/Resolving]
  - Visual acuity reduced [Recovering/Resolving]

NARRATIVE: CASE EVENT DATE: 20150701
